FAERS Safety Report 10373112 (Version 2)
Quarter: 2014Q3

REPORT INFORMATION
  Report Type: Report from Study
  Country: VE (occurrence: VE)
  Receive Date: 20140808
  Receipt Date: 20140815
  Transmission Date: 20150326
  Serious: Yes (Other)
  Sender: FDA-Public Use
  Company Number: VE-ABBVIE-14P-178-1266681-00

PATIENT
  Age: 58 Year
  Sex: Female
  Weight: 76 kg

DRUGS (3)
  1. HUMIRA [Suspect]
     Active Substance: ADALIMUMAB
     Indication: RHEUMATOID ARTHRITIS
     Route: 058
     Dates: start: 2010, end: 201406
  2. METICORTEN [Concomitant]
     Active Substance: PREDNISONE
     Indication: PRODUCT USED FOR UNKNOWN INDICATION
     Route: 048
     Dates: start: 2000
  3. CORMAC [Concomitant]
     Indication: HYPERTENSION
     Route: 048
     Dates: start: 2010

REACTIONS (4)
  - Central nervous system inflammation [Unknown]
  - Cerebrovascular accident [Unknown]
  - Local swelling [Unknown]
  - Injury [Recovering/Resolving]

NARRATIVE: CASE EVENT DATE: 201406
